FAERS Safety Report 4675108-6 (Version None)
Quarter: 2005Q2

REPORT INFORMATION
  Report Type: 
  Country: None (occurrence: None)
  Receive Date: 20050526
  Receipt Date: 20050208
  Transmission Date: 20051028
  Serious: Yes (Other)
  Sender: FDA-Public Use
  Company Number: US-MERCK-0502USA00791

PATIENT
  Age: 63 Year
  Sex: Male

DRUGS (5)
  1. VIOXX [Suspect]
     Indication: HEADACHE
     Route: 048
     Dates: start: 20031001, end: 20040101
  2. VIOXX [Suspect]
     Route: 048
     Dates: start: 20040101, end: 20040901
  3. VITAMINS (UNSPECIFIED) [Concomitant]
     Route: 048
  4. FISH OIL (UNSPECIFIED) [Concomitant]
     Route: 048
  5. ATENOLOL [Concomitant]
     Route: 048

REACTIONS (8)
  - ARRHYTHMIA [None]
  - BLINDNESS [None]
  - CATARACT [None]
  - DIZZINESS [None]
  - HEADACHE [None]
  - NAUSEA [None]
  - SYNCOPE [None]
  - VISION BLURRED [None]
